FAERS Safety Report 5273950-4 (Version None)
Quarter: 2007Q1

REPORT INFORMATION
  Report Type: 
  Country: None (occurrence: None)
  Receive Date: 20070323
  Receipt Date: 20070314
  Transmission Date: 20070707
  Serious: Yes (Hospitalization, Other)
  Sender: FDA-Public Use
  Company Number: US-ELI_LILLY_AND_COMPANY-US200703003084

PATIENT
  Age: 79 Year
  Sex: Male

DRUGS (6)
  1. ALIMTA [Suspect]
     Indication: MESOTHELIOMA
     Dosage: 500 MG/M2, UNK
     Dates: start: 20070220, end: 20070220
  2. CISPLATIN [Concomitant]
     Indication: MESOTHELIOMA
     Dosage: 75 MG/M2, UNK
     Dates: end: 20070220
  3. ALOXI [Concomitant]
  4. EMEND [Concomitant]
  5. VITAMIN B-12 [Concomitant]
     Indication: VITAMIN SUPPLEMENTATION
     Dates: start: 20070213
  6. FOLIC ACID [Concomitant]
     Indication: VITAMIN SUPPLEMENTATION

REACTIONS (4)
  - ADVERSE DRUG REACTION [None]
  - BLOOD MAGNESIUM ABNORMAL [None]
  - DEEP VEIN THROMBOSIS [None]
  - HYPOTENSION [None]
